FAERS Safety Report 7297072-6 (Version None)
Quarter: 2011Q1

REPORT INFORMATION
  Report Type: 
  Country: None (occurrence: None)
  Receive Date: 20110216
  Receipt Date: 20110209
  Transmission Date: 20110831
  Serious: Yes (Other)
  Sender: FDA-Public Use
  Company Number: BR-SANOFI-AVENTIS-2011SA008839

PATIENT
  Sex: Female
  Weight: 54 kg

DRUGS (9)
  1. LANTUS [Suspect]
     Indication: TYPE 2 DIABETES MELLITUS
     Route: 058
  2. APROZIDE [Concomitant]
     Indication: HYPERTENSION
     Route: 048
  3. PARIET [Concomitant]
     Indication: GASTRIC DISORDER
     Route: 048
  4. METOPROLOL TARTRATE [Concomitant]
     Route: 048
  5. PLAVIX [Concomitant]
     Indication: ANTICOAGULANT THERAPY
     Route: 048
  6. ATORVASTATIN CALCIUM [Concomitant]
     Route: 048
  7. AUTOPEN 24 [Suspect]
  8. HUMALOG [Concomitant]
     Indication: TYPE 2 DIABETES MELLITUS
     Route: 058
  9. OMEPRAZOLE [Concomitant]
     Indication: GASTRIC DISORDER
     Route: 048

REACTIONS (4)
  - HYPERTENSION [None]
  - CONDITION AGGRAVATED [None]
  - CORONARY ARTERY OCCLUSION [None]
  - BLOOD CHOLESTEROL INCREASED [None]
